FAERS Safety Report 5355216-7 (Version None)
Quarter: 2007Q2

REPORT INFORMATION
  Report Type: 
  Country: None (occurrence: None)
  Receive Date: 20070525
  Receipt Date: 20070216
  Transmission Date: 20071010
  Serious: Yes (Other)
  Sender: FDA-Public Use
  Company Number: PHEH2007US01009

PATIENT
  Age: 60 Year
  Sex: Male

DRUGS (5)
  1. VOLTAREN [Suspect]
     Indication: EYE LASER SURGERY
     Dosage: 2 GTT, ONCE/SINGLE/TOPICAL OPHTH.
     Route: 061
     Dates: start: 20061205, end: 20061205
  2. PROPARACAINE (PROXYMETACAINE) [Concomitant]
  3. ZYMAR [Concomitant]
  4. FLUOROMETHOLONE (FLUOROMETHOLONE) [Concomitant]
  5. BALANCED SALT SOLUTION (CALCIUM CHLORIDE DIHYDRATE, MAGNESIUM CHLORIDE [Concomitant]

REACTIONS (1)
  - KERATITIS [None]
